FAERS Safety Report 11540676 (Version 1)
Quarter: 2015Q3

REPORT INFORMATION
  Report Type: Spontaneous
  Country: US (occurrence: US)
  Receive Date: 20150923
  Receipt Date: 20150923
  Transmission Date: 20151125
  Serious: No
  Sender: FDA-Public Use
  Company Number: US-BEH-2015052309

PATIENT
  Sex: Female
  Weight: 119 kg

DRUGS (50)
  1. QVAR [Concomitant]
     Active Substance: BECLOMETHASONE DIPROPIONATE
  2. ERYTHROMYCIN. [Concomitant]
     Active Substance: ERYTHROMYCIN
  3. VALIUM [Concomitant]
     Active Substance: DIAZEPAM
  4. TEMOVATE [Concomitant]
     Active Substance: CLOBETASOL PROPIONATE
  5. FLOMAX [Concomitant]
     Active Substance: TAMSULOSIN HYDROCHLORIDE
  6. LEVOTHYROXINE. [Concomitant]
     Active Substance: LEVOTHYROXINE
  7. EPIPEN [Concomitant]
     Active Substance: EPINEPHRINE
     Indication: ANAPHYLACTIC REACTION
  8. CIPRO [Concomitant]
     Active Substance: CIPROFLOXACIN HYDROCHLORIDE
  9. SENNA [Concomitant]
     Active Substance: SENNA LEAF\SENNOSIDES\SENNOSIDES A AND B
  10. SODIUM CHLORIDE. [Concomitant]
     Active Substance: SODIUM CHLORIDE
     Route: 042
  11. PREDNISONE 5 MG [Concomitant]
  12. NORMAL SALINE [Concomitant]
     Active Substance: SODIUM CHLORIDE
  13. CENTRUM SILVER [Concomitant]
     Active Substance: VITAMINS
  14. BACLOFEN. [Concomitant]
     Active Substance: BACLOFEN
  15. ZOFRAN [Concomitant]
     Active Substance: ONDANSETRON HYDROCHLORIDE
  16. DANTRIUM [Concomitant]
     Active Substance: DANTROLENE SODIUM
  17. XYLOCAINE [Concomitant]
     Active Substance: LIDOCAINE HYDROCHLORIDE
  18. LEVAQUIN [Concomitant]
     Active Substance: LEVOFLOXACIN
  19. PRIVIGEN [Suspect]
     Active Substance: HUMAN IMMUNOGLOBULIN G
     Route: 042
  20. PRIVIGEN [Suspect]
     Active Substance: HUMAN IMMUNOGLOBULIN G
     Route: 042
  21. ACETAMINOPHEN. [Concomitant]
     Active Substance: ACETAMINOPHEN
  22. FLONASE [Concomitant]
     Active Substance: FLUTICASONE PROPIONATE
  23. PRILOSEC [Concomitant]
     Active Substance: OMEPRAZOLE MAGNESIUM
  24. MIRALAX [Concomitant]
     Active Substance: POLYETHYLENE GLYCOL 3350
  25. ASPIRIN. [Concomitant]
     Active Substance: ASPIRIN
  26. BECLOMETHASONE [Concomitant]
     Active Substance: BECLOMETHASONE
  27. NORTRIPTYLINE [Concomitant]
     Active Substance: NORTRIPTYLINE
  28. FISH OIL OMEGA 3 [Concomitant]
  29. DIPHENHYDRAMINE. [Concomitant]
     Active Substance: DIPHENHYDRAMINE
  30. ZITHROMAX [Concomitant]
     Active Substance: AZITHROMYCIN DIHYDRATE
  31. CYMBALTA [Concomitant]
     Active Substance: DULOXETINE HYDROCHLORIDE
  32. AMBIEN [Concomitant]
     Active Substance: ZOLPIDEM TARTRATE
  33. ALBUTEROL. [Concomitant]
     Active Substance: ALBUTEROL
  34. ENBREL [Concomitant]
     Active Substance: ETANERCEPT
  35. TYLENOL [Concomitant]
     Active Substance: ACETAMINOPHEN
  36. CALCIUM [Concomitant]
     Active Substance: CALCIUM
  37. LIDOCAINE HC [Concomitant]
  38. PRAVACHOL [Concomitant]
     Active Substance: PRAVASTATIN SODIUM
  39. SINGULAIR [Concomitant]
     Active Substance: MONTELUKAST SODIUM
  40. EFFEXOR [Concomitant]
     Active Substance: VENLAFAXINE HYDROCHLORIDE
  41. NORCO [Concomitant]
     Active Substance: ACETAMINOPHEN\HYDROCODONE BITARTRATE
  42. THALOMID [Concomitant]
     Active Substance: THALIDOMIDE
  43. PRIVIGEN [Suspect]
     Active Substance: HUMAN IMMUNOGLOBULIN G
     Indication: HYPOGAMMAGLOBULINAEMIA
     Route: 042
  44. PRIVIGEN [Suspect]
     Active Substance: HUMAN IMMUNOGLOBULIN G
     Indication: BEHCET^S SYNDROME
     Route: 042
  45. PREDNISONE. [Concomitant]
     Active Substance: PREDNISONE
  46. LMX [Concomitant]
     Active Substance: LIDOCAINE
  47. SAVELLA [Concomitant]
     Active Substance: MILNACIPRAN HYDROCHLORIDE
  48. KEPPRA [Concomitant]
     Active Substance: LEVETIRACETAM
  49. FOLIC ACID. [Concomitant]
     Active Substance: FOLIC ACID
  50. KLONOPIN [Concomitant]
     Active Substance: CLONAZEPAM

REACTIONS (3)
  - Urinary tract infection [Unknown]
  - Sinusitis [Unknown]
  - Eye infection [Unknown]
